FAERS Safety Report 7818381-5 (Version None)
Quarter: 2011Q4

REPORT INFORMATION
  Report Type: 
  Country: None (occurrence: None)
  Receive Date: 20111017
  Receipt Date: 20111006
  Transmission Date: 20120403
  Serious: Yes (Other)
  Sender: FDA-Public Use
  Company Number: IL-ASTRAZENECA-2011SE61195

PATIENT
  Age: 43 Year
  Sex: Female

DRUGS (1)
  1. SEROQUEL [Suspect]
     Indication: SCHIZOPHRENIA
     Route: 048

REACTIONS (3)
  - RASH [None]
  - LIVER FUNCTION TEST ABNORMAL [None]
  - SCRATCH [None]
